FAERS Safety Report 15639799 (Version 1)
Quarter: 2018Q4

REPORT INFORMATION
  Report Type: Spontaneous
  Country: GB (occurrence: GB)
  Receive Date: 20181120
  Receipt Date: 20181120
  Transmission Date: 20190205
  Serious: Yes (Other)
  Sender: FDA-Public Use
  Company Number: PHHY2018GB156986

PATIENT
  Sex: Male

DRUGS (3)
  1. FLUDARABINE [Suspect]
     Active Substance: FLUDARABINE PHOSPHATE
     Indication: JUVENILE IDIOPATHIC ARTHRITIS
     Dosage: 30 MG/M2, DAILY, FROM DAYS 7 TO 3
     Route: 065
  2. MELPHALAN. [Suspect]
     Active Substance: MELPHALAN
     Indication: JUVENILE IDIOPATHIC ARTHRITIS
     Dosage: 140 MG/M2, ON DAY 3
     Route: 065
  3. ALEMTUZUMAB [Suspect]
     Active Substance: ALEMTUZUMAB
     Indication: JUVENILE IDIOPATHIC ARTHRITIS
     Dosage: 0.2 MG/KG, DAILY, FORM DAYS 8 TO 4
     Route: 065

REACTIONS (2)
  - Pneumomediastinum [Unknown]
  - Pneumothorax [Unknown]
